FAERS Safety Report 8809543 (Version 1)
Quarter: 2012Q4

REPORT INFORMATION
  Report Type: Report from Study
  Country: DE (occurrence: DE)
  Receive Date: 20120926
  Receipt Date: 20120926
  Transmission Date: 20130627
  Serious: Yes (Hospitalization)
  Sender: FDA-Public Use
  Company Number: DE-ROCHE-1136971

PATIENT
  Sex: Female

DRUGS (12)
  1. ROACTEMRA [Suspect]
     Indication: RHEUMATOID ARTHRITIS
     Route: 065
     Dates: start: 201110, end: 20120130
  2. ROACTEMRA [Suspect]
     Route: 065
     Dates: start: 20120326
  3. METHOTREXATE [Suspect]
     Indication: RHEUMATOID ARTHRITIS
     Route: 065
     Dates: start: 200902, end: 201110
  4. METHOTREXATE [Suspect]
     Route: 058
     Dates: start: 201111
  5. SALICYLAZOSULFAPYRIDINE [Concomitant]
     Route: 065
     Dates: start: 200310, end: 200506
  6. SALICYLAZOSULFAPYRIDINE [Concomitant]
     Route: 065
     Dates: start: 201006, end: 201110
  7. HYDROXYCHLOROQUINE [Concomitant]
     Route: 065
     Dates: start: 200310, end: 200406
  8. HYDROXYCHLOROQUINE [Concomitant]
     Route: 065
     Dates: start: 201007, end: 201110
  9. PREDNISOLON [Concomitant]
     Route: 065
     Dates: start: 2000
  10. IBUPROFEN [Concomitant]
     Route: 065
     Dates: start: 201110
  11. OMEPRAZOL [Concomitant]
     Route: 065
     Dates: start: 201110
  12. FLUCONAZOLE [Concomitant]
     Route: 065
     Dates: start: 201010

REACTIONS (1)
  - Pleurisy [Recovered/Resolved]
